FAERS Safety Report 18633902 (Version 1)
Quarter: 2020Q4

REPORT INFORMATION
  Report Type: Spontaneous
  Country: US (occurrence: US)
  Receive Date: 20201218
  Receipt Date: 20201218
  Transmission Date: 20210114
  Serious: Yes (Death)
  Sender: FDA-Public Use
  Company Number: None

PATIENT
  Sex: Female

DRUGS (2)
  1. NEULASTA [Suspect]
     Active Substance: PEGFILGRASTIM
     Route: 048
  2. NEULASTA [Suspect]
     Active Substance: PEGFILGRASTIM
     Indication: RECTAL CANCER
     Dosage: ?          OTHER FREQUENCY:EVERY14DAYS ;?
     Route: 058
     Dates: start: 20201013

REACTIONS (1)
  - Death [None]
